FAERS Safety Report 20090172 (Version 1)
Quarter: 2021Q4

REPORT INFORMATION
  Report Type: Spontaneous
  Country: US (occurrence: None)
  Receive Date: 20211118
  Receipt Date: 20211118
  Transmission Date: 20220304
  Serious: No
  Sender: FDA-Public Use
  Company Number: None

PATIENT
  Age: 40 Year
  Sex: Female

DRUGS (1)
  1. HUMIRA [Suspect]
     Active Substance: ADALIMUMAB
     Indication: Crohn^s disease
     Dosage: OTHER QUANTITY : 40MG/0.8ML ;?FREQUENCY : EVERY OTHER WEEK;?
     Route: 058
     Dates: start: 20211019

REACTIONS (3)
  - Inappropriate schedule of product administration [None]
  - Extra dose administered [None]
  - Therapy interrupted [None]

NARRATIVE: CASE EVENT DATE: 20211019
